FAERS Safety Report 10359855 (Version 1)
Quarter: 2014Q3

REPORT INFORMATION
  Report Type: Other
  Country: GB (occurrence: GB)
  Receive Date: 20140804
  Receipt Date: 20140804
  Transmission Date: 20150326
  Serious: Yes (Hospitalization)
  Sender: FDA-Public Use
  Company Number: GB-TARO PHARMACEUTICALS U.S.A., INC-2014SUN01736

PATIENT

DRUGS (11)
  1. ALLOPURINOL. [Concomitant]
     Active Substance: ALLOPURINOL
  2. AMISULPRIDE [Concomitant]
     Active Substance: AMISULPRIDE
  3. COLCHICINE. [Concomitant]
     Active Substance: COLCHICINE
  4. BISOPROLOL [Concomitant]
     Active Substance: BISOPROLOL
  5. WARFARIN [Suspect]
     Active Substance: WARFARIN
     Indication: ATRIAL FIBRILLATION
     Dosage: AS PER INR - WAS ON 3/3/3/3/3/4/3 FOR 4 WEEKS PRIOR TO STOPPING
     Route: 048
     Dates: start: 20140204, end: 20140422
  6. COCODAMOL [Concomitant]
     Active Substance: ACETAMINOPHEN\CODEINE PHOSPHATE
  7. FUROSEMIDE. [Concomitant]
     Active Substance: FUROSEMIDE
  8. RAMIPRIL. [Concomitant]
     Active Substance: RAMIPRIL
  9. ALENDRONIC ACID [Concomitant]
     Active Substance: ALENDRONIC ACID
  10. ASPIRIN. [Concomitant]
     Active Substance: ASPIRIN
     Dosage: ASPIRIN WAS STOPPED WHEN WARFARIN WAS STARTED.
  11. CALCICHEW D3 [Concomitant]
     Active Substance: CALCIUM\CHOLECALCIFEROL

REACTIONS (3)
  - Iron deficiency anaemia [Recovered/Resolved]
  - Dyspnoea [Unknown]
  - Haemorrhage [Unknown]

NARRATIVE: CASE EVENT DATE: 20140422
